FAERS Safety Report 6252879-9 (Version None)
Quarter: 2009Q3

REPORT INFORMATION
  Report Type: 
  Country: None (occurrence: None)
  Receive Date: 20090701
  Receipt Date: 20090625
  Transmission Date: 20100115
  Serious: Yes (Hospitalization, Other)
  Sender: FDA-Public Use
  Company Number: BR-ABBOTT-09P-020-0560581-00

PATIENT
  Age: 2 Year
  Sex: Male
  Weight: 12 kg

DRUGS (5)
  1. DEPAKOTE [Suspect]
     Indication: PARTIAL SEIZURES
     Dosage: ONE TABLET EVERY 12 HOURS
     Route: 048
     Dates: start: 20080101, end: 20081201
  2. DEPAKOTE [Suspect]
     Dosage: 1/2 TABLET EVERY 12 HOURS
     Dates: start: 20081201
  3. TOPIRAMATE [Suspect]
     Indication: PARTIAL SEIZURES
  4. RANITIDINE [Concomitant]
     Indication: GASTROOESOPHAGEAL REFLUX DISEASE
  5. BROMOPRIDE [Concomitant]
     Indication: GASTROOESOPHAGEAL REFLUX DISEASE

REACTIONS (8)
  - DECREASED APPETITE [None]
  - HYPERSENSITIVITY [None]
  - LEUKOPENIA [None]
  - PARTIAL SEIZURES [None]
  - PNEUMONIA [None]
  - SINUSITIS [None]
  - THROMBOCYTOPENIA [None]
  - VIRAL INFECTION [None]
